FAERS Safety Report 9416775 (Version 1)
Quarter: 2013Q3

REPORT INFORMATION
  Report Type: Spontaneous
  Country: US (occurrence: US)
  Receive Date: 20130724
  Receipt Date: 20130724
  Transmission Date: 20140515
  Serious: No
  Sender: FDA-Public Use
  Company Number: US-GALDERMA-US12415868

PATIENT
  Age: 23 Year
  Sex: Female
  Weight: 59 kg

DRUGS (2)
  1. ORACEA (DOXYCYCLINE, USP) CAPSULES 40 MG [Suspect]
     Indication: ROSACEA
     Dates: start: 201211, end: 201211
  2. CETAPHIL GENTLE CLEANSING BAR [Concomitant]
     Route: 061
     Dates: start: 2010

REACTIONS (2)
  - Drug ineffective [Unknown]
  - Expired drug administered [Recovered/Resolved]
